FAERS Safety Report 4773142-9 (Version None)
Quarter: 2005Q3

REPORT INFORMATION
  Report Type: 
  Country: None (occurrence: None)
  Receive Date: 20050919
  Receipt Date: 20050909
  Transmission Date: 20060218
  Serious: Yes (Hospitalization)
  Sender: FDA-Public Use
  Company Number: 2005-US-00048

PATIENT
  Sex: Male

DRUGS (2)
  1. BACLOFEN [Suspect]
     Indication: MUSCLE SPASTICITY
     Dosage: 5 MG BD
  2. PHENYTOIN [Concomitant]

REACTIONS (5)
  - ANTICONVULSANT DRUG LEVEL BELOW THERAPEUTIC [None]
  - CONVULSION [None]
  - HYPERTHERMIA [None]
  - SOMNOLENCE [None]
  - TREATMENT NONCOMPLIANCE [None]
